FAERS Safety Report 5843947-1 (Version None)
Quarter: 2008Q3

REPORT INFORMATION
  Report Type: 
  Country: None (occurrence: None)
  Receive Date: 20080813
  Receipt Date: 20080807
  Transmission Date: 20090109
  Serious: Yes (Hospitalization)
  Sender: FDA-Public Use
  Company Number: JP-ABBOTT-08P-087-0470025-00

PATIENT
  Age: 74 Year
  Sex: Male

DRUGS (6)
  1. LEUPROLIDE ACETATE [Suspect]
     Indication: PROSTATE CANCER STAGE II
     Route: 058
     Dates: start: 20070814
  2. NAFTOPIDIL [Concomitant]
     Indication: DYSURIA
     Route: 048
  3. FAMOTIDINE [Concomitant]
     Indication: GASTRITIS
     Route: 048
     Dates: start: 20070913
  4. PYRIDOXAL PHOSPHATE [Concomitant]
     Indication: DRUG USE FOR UNKNOWN INDICATION
  5. ISONIAZID [Concomitant]
     Indication: DRUG USE FOR UNKNOWN INDICATION
  6. BACTRIM [Concomitant]
     Indication: DRUG USE FOR UNKNOWN INDICATION
     Dosage: 4 T/DAY, TWICE/WEEK

REACTIONS (1)
  - T-CELL LYMPHOMA [None]
